FAERS Safety Report 5588124-7 (Version None)
Quarter: 2008Q1

REPORT INFORMATION
  Report Type: 
  Country: None (occurrence: None)
  Receive Date: 20080111
  Receipt Date: 20080104
  Transmission Date: 20080703
  Serious: Yes (Death)
  Sender: FDA-Public Use
  Company Number: US-JNJFOC-20080101659

PATIENT
  Age: 52 Year
  Sex: Male

DRUGS (8)
  1. TRAMADOL HCL [Suspect]
     Indication: SUICIDE ATTEMPT
     Route: 048
  2. TRIFLUOPERAZINE [Suspect]
     Indication: SUICIDE ATTEMPT
     Route: 048
  3. HYDROXYZINE [Suspect]
     Indication: SUICIDE ATTEMPT
     Route: 048
  4. METHOTREXATE [Suspect]
     Indication: SUICIDE ATTEMPT
     Route: 048
  5. ALPRAZOLAM [Suspect]
     Indication: SUICIDE ATTEMPT
     Route: 048
  6. CLONAZEPAM [Suspect]
     Indication: SUICIDE ATTEMPT
     Route: 048
  7. BENZODIAZEPAM [Suspect]
     Indication: SUICIDE ATTEMPT
     Route: 048
  8. LAMOTRIGINE [Suspect]
     Indication: SUICIDE ATTEMPT
     Route: 048

REACTIONS (2)
  - COMPLETED SUICIDE [None]
  - DRUG TOXICITY [None]
